FAERS Safety Report 16058615 (Version 1)
Quarter: 2019Q1

REPORT INFORMATION
  Report Type: Report from Study
  Country: US (occurrence: US)
  Receive Date: 20190311
  Receipt Date: 20190311
  Transmission Date: 20190418
  Serious: Yes (Other)
  Sender: FDA-Public Use
  Company Number: US-AMAG PHARMACEUTICALS, INC.-AMAG201900077

PATIENT
  Age: 80 Year
  Sex: Female

DRUGS (1)
  1. INTRAROSA [Suspect]
     Active Substance: PRASTERONE
     Indication: DYSPAREUNIA
     Dosage: UNK, THREE TIMES A WEEK
     Route: 067
     Dates: start: 201810

REACTIONS (2)
  - Macular degeneration [Unknown]
  - Therapeutic response unexpected [Unknown]
